FAERS Safety Report 14326618 (Version 2)
Quarter: 2018Q1

REPORT INFORMATION
  Report Type: Spontaneous
  Country: US (occurrence: US)
  Receive Date: 20171227
  Receipt Date: 20180129
  Transmission Date: 20180509
  Serious: No
  Sender: FDA-Public Use
  Company Number: US-TEVA-2017-US-836665

PATIENT
  Sex: Female

DRUGS (1)
  1. FENTANYL. [Suspect]
     Active Substance: FENTANYL
     Route: 065
     Dates: start: 20171113

REACTIONS (6)
  - Pain [Unknown]
  - Feeling abnormal [Unknown]
  - Pruritus [Unknown]
  - Bladder spasm [Unknown]
  - Personality disorder [Unknown]
  - Muscle spasms [Unknown]
